FAERS Safety Report 9486584 (Version 4)
Quarter: 2013Q4

REPORT INFORMATION
  Report Type: Report from Study
  Country: KR (occurrence: KR)
  Receive Date: 20130829
  Receipt Date: 20131104
  Transmission Date: 20140711
  Serious: Yes (Hospitalization)
  Sender: FDA-Public Use
  Company Number: PHHO2013KR007320

PATIENT
  Sex: 0

DRUGS (2)
  1. SOM230 [Suspect]
     Indication: PITUITARY-DEPENDENT CUSHING^S SYNDROME
     Dosage: 0.9 MG, BID
     Route: 058
     Dates: start: 20120221
  2. INSULIN [Suspect]
     Dates: end: 20130809

REACTIONS (3)
  - Hyperglycaemia [Recovering/Resolving]
  - Hypoglycaemia [Recovering/Resolving]
  - Hypokalaemia [Recovered/Resolved]
